FAERS Safety Report 9731091 (Version 1)
Quarter: 2013Q4

REPORT INFORMATION
  Report Type: Spontaneous
  Country: CH (occurrence: CH)
  Receive Date: 20131203
  Receipt Date: 20131203
  Transmission Date: 20140711
  Serious: Yes (Death, Hospitalization, Other)
  Sender: FDA-Public Use
  Company Number: CH-ELI_LILLY_AND_COMPANY-CH201311008796

PATIENT
  Age: 65 Year
  Sex: Female
  Weight: 39 kg

DRUGS (6)
  1. GEMZAR [Suspect]
     Indication: URINARY TRACT DISORDER
     Dosage: 1300 MG, UNKNOWN
     Route: 042
     Dates: start: 20130924, end: 20131108
  2. CISPLATIN [Suspect]
     Indication: URINARY TRACT DISORDER
     Dosage: 100 MG, UNKNOWN
     Route: 042
     Dates: start: 20130924, end: 20131022
  3. AMLODIPINE [Suspect]
     Indication: PRODUCT USED FOR UNKNOWN INDICATION
     Dosage: 5 MG, QD
     Route: 048
  4. ACIDUM FOLICUM [Concomitant]
     Dosage: 5 MG, WEEKLY (1/W)
     Route: 048
  5. MALTOFER                           /00383901/ [Concomitant]
     Dosage: 20 GTT, QD
     Route: 048
  6. VITAMIN D3 STREULI [Concomitant]
     Dosage: 8 GTT, QD
     Route: 048

REACTIONS (24)
  - Malignant neoplasm progression [Fatal]
  - Aortic thrombosis [Fatal]
  - Intestinal ischaemia [Fatal]
  - Ileus [Fatal]
  - Hepatic necrosis [Fatal]
  - Hepatic ischaemia [Unknown]
  - Renal disorder [Fatal]
  - Inflammation [Unknown]
  - Truncus coeliacus thrombosis [Unknown]
  - Mesenteric artery thrombosis [Unknown]
  - Abdominal infection [Not Recovered/Not Resolved]
  - Arterial insufficiency [Unknown]
  - Malnutrition [Not Recovered/Not Resolved]
  - C-reactive protein increased [Unknown]
  - Amylase increased [Unknown]
  - Escherichia infection [Not Recovered/Not Resolved]
  - Urinary tract infection bacterial [Not Recovered/Not Resolved]
  - Alanine aminotransferase increased [Unknown]
  - Aspartate aminotransferase increased [Unknown]
  - Gamma-glutamyltransferase increased [Unknown]
  - Blood alkaline phosphatase increased [Unknown]
  - Anaemia [Not Recovered/Not Resolved]
  - Hypokalaemia [Not Recovered/Not Resolved]
  - Hypertension [Not Recovered/Not Resolved]
